FAERS Safety Report 6988554-2 (Version None)
Quarter: 2010Q3

REPORT INFORMATION
  Report Type: 
  Country: None (occurrence: None)
  Receive Date: 20100916
  Receipt Date: 20100903
  Transmission Date: 20110219
  Serious: Yes (Other)
  Sender: FDA-Public Use
  Company Number: US-ELI_LILLY_AND_COMPANY-US201009002286

PATIENT
  Age: 92 Year
  Sex: Female

DRUGS (3)
  1. CYMBALTA [Suspect]
     Indication: DEPRESSION
     Dosage: 60 MG, 2/D
     Dates: start: 20100427, end: 20100427
  2. VICODIN [Concomitant]
  3. PLAVIX [Concomitant]

REACTIONS (4)
  - DISORIENTATION [None]
  - FALL [None]
  - HEAD INJURY [None]
  - SPEECH DISORDER [None]
